FAERS Safety Report 16487928 (Version 6)
Quarter: 2019Q4

REPORT INFORMATION
  Report Type: Spontaneous
  Country: US (occurrence: US)
  Receive Date: 20190627
  Receipt Date: 20191004
  Transmission Date: 20200122
  Serious: No
  Sender: FDA-Public Use
  Company Number: US-JNJFOC-20190621861

PATIENT
  Age: 69 Year
  Sex: Male

DRUGS (2)
  1. IMBRUVICA [Suspect]
     Active Substance: IBRUTINIB
     Indication: CHRONIC LYMPHOCYTIC LEUKAEMIA
     Dosage: 420 MG, UNK
     Route: 048
  2. IMBRUVICA [Suspect]
     Active Substance: IBRUTINIB
     Dosage: 280 MG, UNK
     Route: 048

REACTIONS (5)
  - Off label use [Unknown]
  - Platelet count decreased [Recovered/Resolved]
  - Product use issue [Unknown]
  - White blood cell count increased [Recovered/Resolved]
  - Gastrointestinal bacterial infection [Unknown]

NARRATIVE: CASE EVENT DATE: 20190613
